FAERS Safety Report 9229896 (Version 1)
Quarter: 2013Q2

REPORT INFORMATION
  Report Type: Spontaneous
  Country: US (occurrence: None)
  Receive Date: 20130412
  Receipt Date: 20130412
  Transmission Date: 20140414
  Serious: Yes (Life-Threatening, Other)
  Sender: FDA-Public Use
  Company Number: None

PATIENT
  Age: 64 Year
  Sex: Male
  Weight: 91.63 kg

DRUGS (1)
  1. HYDROCODONE/HOMATROPINE [Suspect]
     Indication: COUGH
     Dosage: 2 TEASPOONS - NE TABLET SPOON
     Dates: start: 20130409, end: 20130409

REACTIONS (5)
  - Rash [None]
  - Dizziness [None]
  - Nausea [None]
  - Gait disturbance [None]
  - Vomiting [None]
